FAERS Safety Report 11028424 (Version 2)
Quarter: 2015Q2

REPORT INFORMATION
  Report Type: Spontaneous
  Country: US (occurrence: US)
  Receive Date: 20150414
  Receipt Date: 20150525
  Transmission Date: 20150821
  Serious: No
  Sender: FDA-Public Use
  Company Number: US-JNJFOC-20120603784

PATIENT
  Sex: Female
  Weight: 56.7 kg

DRUGS (2)
  1. QUERCETIN [Interacting]
     Active Substance: QUERCETIN
     Indication: SINUS DISORDER
     Route: 048
     Dates: start: 201204, end: 201205
  2. ORTHO TRI CYCLEN [Suspect]
     Active Substance: ETHINYL ESTRADIOL\NORGESTIMATE
     Indication: CONTRACEPTION
     Route: 048
     Dates: start: 1999

REACTIONS (9)
  - Blood oestrogen increased [Not Recovered/Not Resolved]
  - Abdominal distension [Not Recovered/Not Resolved]
  - Bladder pain [Not Recovered/Not Resolved]
  - Menstruation irregular [Recovered/Resolved]
  - Breast pain [Not Recovered/Not Resolved]
  - Anxiety [Not Recovered/Not Resolved]
  - Flatulence [Not Recovered/Not Resolved]
  - Drug interaction [Unknown]
  - Pain [Not Recovered/Not Resolved]

NARRATIVE: CASE EVENT DATE: 2008
